FAERS Safety Report 19522986 (Version 1)
Quarter: 2021Q3

REPORT INFORMATION
  Report Type: Spontaneous
  Country: US (occurrence: US)
  Receive Date: 20210712
  Receipt Date: 20210712
  Transmission Date: 20211014
  Serious: No
  Sender: FDA-Public Use
  Company Number: US-MYLANLABS-2021M1040428

PATIENT
  Sex: Female

DRUGS (1)
  1. ESTRADIOL TRANSDERMAL SYSTEM [Suspect]
     Active Substance: ESTRADIOL
     Indication: HOT FLUSH
     Dosage: UNK
     Route: 062

REACTIONS (6)
  - Dizziness [Unknown]
  - Headache [Unknown]
  - Drug ineffective [Unknown]
  - Influenza like illness [Unknown]
  - Vomiting [Unknown]
  - Product adhesion issue [Unknown]
